FAERS Safety Report 6831764-5 (Version None)
Quarter: 2010Q2

REPORT INFORMATION
  Report Type: 
  Country: None (occurrence: None)
  Receive Date: 20100520
  Receipt Date: 20090331
  Transmission Date: 20101027
  Serious: Yes (Disabling, Other)
  Sender: FDA-Public Use
  Company Number: 2009194693

PATIENT
  Age: 49 Year
  Sex: Female
  Weight: 56 kg

DRUGS (5)
  1. PROVERA [Suspect]
     Indication: MENOPAUSAL SYMPTOMS
     Dates: start: 19900101, end: 20010101
  2. PREMARIN [Suspect]
     Indication: MENOPAUSAL SYMPTOMS
     Dates: start: 19900101, end: 20010101
  3. CYCRIN [Suspect]
     Indication: MENOPAUSAL SYMPTOMS
     Dates: start: 19900101, end: 20010101
  4. MEDROXYPROGESTERONE [Suspect]
     Indication: MENOPAUSAL SYMPTOMS
     Dates: start: 19900101, end: 20010101
  5. ALLEGRA [Concomitant]

REACTIONS (1)
  - BREAST CANCER [None]
